FAERS Safety Report 4504513-3 (Version None)
Quarter: 2004Q4

REPORT INFORMATION
  Report Type: 
  Country: None (occurrence: None)
  Receive Date: 20041118
  Receipt Date: 20040503
  Transmission Date: 20050328
  Serious: Yes (Life-Threatening, Hospitalization)
  Sender: FDA-Public Use
  Company Number: FR-BRISTOL-MYERS SQUIBB COMPANY-12577029

PATIENT
  Age: 46 Year
  Sex: Female

DRUGS (4)
  1. VASTEN [Suspect]
     Indication: HYPERCHOLESTEROLAEMIA
     Route: 048
     Dates: start: 20040115, end: 20040311
  2. PLAVIX [Suspect]
     Indication: MYOCARDIAL INFARCTION
     Route: 048
     Dates: start: 20040115, end: 20040311
  3. KARDEGIC [Concomitant]
     Indication: PROPHYLAXIS
     Dates: start: 20040115
  4. TENORMIN [Concomitant]
     Dates: start: 20040115

REACTIONS (4)
  - DYSPHASIA [None]
  - HAEMOLYTIC ANAEMIA [None]
  - PARAESTHESIA [None]
  - THROMBOTIC THROMBOCYTOPENIC PURPURA [None]
